FAERS Safety Report 23100612 (Version 1)
Quarter: 2023Q4

REPORT INFORMATION
  Report Type: Other
  Country: IT (occurrence: None)
  Receive Date: 20231024
  Receipt Date: 20231024
  Transmission Date: 20240110
  Serious: Yes (Other)
  Sender: FDA-Public Use
  Company Number: IT-ROCHE-3441977

PATIENT

DRUGS (6)
  1. VEMURAFENIB [Suspect]
     Active Substance: VEMURAFENIB
     Indication: Metastatic malignant melanoma
     Route: 065
  2. COBIMETINIB [Suspect]
     Active Substance: COBIMETINIB
     Indication: Metastatic malignant melanoma
     Route: 065
  3. DABRAFENIB [Suspect]
     Active Substance: DABRAFENIB
     Indication: Metastatic malignant melanoma
     Route: 065
  4. TRAMETINIB [Suspect]
     Active Substance: TRAMETINIB
     Indication: Metastatic malignant melanoma
     Route: 065
  5. ENCORAFENIB [Suspect]
     Active Substance: ENCORAFENIB
     Indication: Metastatic malignant melanoma
     Route: 065
  6. BINIMETINIB [Suspect]
     Active Substance: BINIMETINIB
     Indication: Metastatic malignant melanoma
     Route: 065

REACTIONS (26)
  - Skin toxicity [Unknown]
  - Asthenia [Unknown]
  - Diarrhoea [Unknown]
  - Hepatic function abnormal [Unknown]
  - Myopathy toxic [Unknown]
  - Renal impairment [Unknown]
  - Neutropenia [Unknown]
  - Ocular toxicity [Unknown]
  - Anaemia [Unknown]
  - Mucosal inflammation [Unknown]
  - Acute myocardial infarction [Unknown]
  - Constipation [Unknown]
  - Electrocardiogram QT prolonged [Unknown]
  - Cardiac failure acute [Unknown]
  - Pyrexia [Unknown]
  - Tachycardia [Unknown]
  - Arthralgia [Unknown]
  - Bradycardia [Unknown]
  - Extrasystoles [Unknown]
  - Bundle branch block right [Unknown]
  - Nausea [Unknown]
  - Defect conduction intraventricular [Unknown]
  - Atrial fibrillation [Unknown]
  - Pericardial effusion [Unknown]
  - Hypertension [Unknown]
  - Drug interaction [Unknown]
